FAERS Safety Report 5092824-5 (Version None)
Quarter: 2006Q3

REPORT INFORMATION
  Report Type: 
  Country: None (occurrence: None)
  Receive Date: 20060727
  Receipt Date: 20060420
  Transmission Date: 20061208
  Serious: Yes (Other)
  Sender: FDA-Public Use
  Company Number: 2006056274

PATIENT
  Sex: 0

DRUGS (1)
  1. LYRICA [Suspect]
     Indication: ILL-DEFINED DISORDER

REACTIONS (8)
  - ABDOMINAL DISTENSION [None]
  - COMMUNICATION DISORDER [None]
  - CONSTIPATION [None]
  - DYSURIA [None]
  - EUPHORIC MOOD [None]
  - PSYCHOMOTOR HYPERACTIVITY [None]
  - UNEVALUABLE EVENT [None]
  - URINE OUTPUT DECREASED [None]
